FAERS Safety Report 9500759 (Version 3)
Quarter: 2013Q4

REPORT INFORMATION
  Report Type: Spontaneous
  Country: US (occurrence: US)
  Receive Date: 20130905
  Receipt Date: 20131125
  Transmission Date: 20140711
  Serious: Yes (Other)
  Sender: FDA-Public Use
  Company Number: US-ELI_LILLY_AND_COMPANY-US201308008679

PATIENT
  Sex: Female
  Weight: 149 kg

DRUGS (2)
  1. HUMALOG LISPRO [Suspect]
     Dosage: UNK
  2. LANTUS [Concomitant]

REACTIONS (3)
  - Blindness [Not Recovered/Not Resolved]
  - Cataract [Unknown]
  - Underdose [Unknown]
